FAERS Safety Report 14408905 (Version 2)
Quarter: 2018Q2

REPORT INFORMATION
  Report Type: Spontaneous
  Country: FR (occurrence: FR)
  Receive Date: 20180119
  Receipt Date: 20180606
  Transmission Date: 20180711
  Serious: Yes (Hospitalization, Other)
  Sender: FDA-Public Use
  Company Number: FR-ACCORD-062781

PATIENT
  Age: 49 Year
  Sex: Female
  Weight: 120 kg

DRUGS (6)
  1. VENLAFAXINE/VENLAFAXINE HYDROCHLORIDE [Suspect]
     Active Substance: VENLAFAXINE HYDROCHLORIDE
     Dosage: REGIMEN 1 ?CHLORHYDRATE BY
     Route: 048
     Dates: start: 20171013, end: 20171013
  2. TERCIAN [Suspect]
     Active Substance: CYAMEMAZINE
     Dosage: REGIMEN 1 ?STRENGTH 25 MG?TARTRATE BY
     Route: 048
     Dates: start: 20171013, end: 20171013
  3. LORMETAZEPAM [Suspect]
     Active Substance: LORMETAZEPAM
     Dosage: REGIMEN 1
     Route: 048
     Dates: start: 20171013, end: 20171013
  4. SERESTA [Suspect]
     Active Substance: OXAZEPAM
     Dosage: STRENGTH 50 MG?REGIMEN 1
     Route: 048
     Dates: start: 20171013, end: 20171013
  5. METHADONE [Suspect]
     Active Substance: METHADONE HYDROCHLORIDE
     Dosage: REGIMEN 1 ?STRENGTH 10 MG?CHLORHYDRATE BY
     Route: 048
     Dates: start: 20171013, end: 20171013
  6. QUETIAPINE. [Suspect]
     Active Substance: QUETIAPINE
     Dosage: REGIMEN 1
     Route: 048
     Dates: start: 20171013, end: 20171013

REACTIONS (3)
  - Tachycardia [Recovered/Resolved]
  - Hypotonia [Recovered/Resolved]
  - Suicide attempt [Unknown]

NARRATIVE: CASE EVENT DATE: 20171013
